FAERS Safety Report 9843039 (Version 1)
Quarter: 2014Q1

REPORT INFORMATION
  Report Type: Report from Study
  Country: US (occurrence: US)
  Receive Date: 20140124
  Receipt Date: 20140124
  Transmission Date: 20141002
  Serious: Yes (Hospitalization)
  Sender: FDA-Public Use
  Company Number: US-US-EMD SERONO, INC.-7263939

PATIENT
  Age: 42 Year
  Sex: Female
  Weight: 85 kg

DRUGS (3)
  1. REBIF [Suspect]
     Indication: MULTIPLE SCLEROSIS
     Route: 058
     Dates: start: 20130816
  2. GABAPENTIN [Concomitant]
     Indication: NEURALGIA
  3. CYMBALTA [Concomitant]
     Indication: DEPRESSION

REACTIONS (1)
  - Chest pain [Recovered/Resolved]
